FAERS Safety Report 4484974-9 (Version None)
Quarter: 2004Q3

REPORT INFORMATION
  Report Type: 
  Country: None (occurrence: None)
  Receive Date: 20040921
  Receipt Date: 20030924
  Transmission Date: 20050211
  Serious: Yes (Hospitalization)
  Sender: FDA-Public Use
  Company Number: 163-20785-03090748

PATIENT
  Age: 68 Year
  Sex: Male
  Weight: 91.5 kg

DRUGS (8)
  1. THALOMID [Suspect]
     Indication: CHRONIC LYMPHOCYTIC LEUKAEMIA
     Dosage: 200 MG, QD, ORAL
     Route: 048
     Dates: start: 20030722
  2. FLUDARABINE PHOSPHATE [Suspect]
     Indication: CHRONIC LYMPHOCYTIC LEUKAEMIA
     Dosage: 25 MG/M2, X5D Q28D, INTRAVENOUS
     Route: 042
     Dates: start: 20030804
  3. FOLIC ACID [Concomitant]
  4. MULTIVITAMIN [Concomitant]
  5. B COMPLEX ELX [Concomitant]
  6. VITAMIN C (ASCORBIC ACID) [Concomitant]
  7. COLACE (DOCUSATE SODIUM) [Concomitant]
  8. COUMADIN [Concomitant]

REACTIONS (4)
  - ANAEMIA [None]
  - CONSTIPATION [None]
  - FEBRILE NEUTROPENIA [None]
  - THROMBOCYTOPENIA [None]
